FAERS Safety Report 10030592 (Version 1)
Quarter: 2014Q1

REPORT INFORMATION
  Report Type: Spontaneous
  Country: US (occurrence: US)
  Receive Date: 20140323
  Receipt Date: 20140323
  Transmission Date: 20141002
  Serious: No
  Sender: FDA-Public Use
  Company Number: US-ALLERGAN-1317987US

PATIENT
  Age: 51 Year
  Sex: Female

DRUGS (5)
  1. LATISSE 0.03% [Suspect]
     Indication: GROWTH OF EYELASHES
     Dosage: 1 GTT, QHS
     Route: 061
  2. LIPITOR [Concomitant]
     Indication: BLOOD CHOLESTEROL INCREASED
     Dosage: 10 MG, QD
     Route: 048
  3. HTN MEDICATION NOS [Concomitant]
     Indication: HYPERTENSION
     Dosage: Q
     Route: 048
  4. ESTROGEN [Concomitant]
     Indication: HORMONE REPLACEMENT THERAPY
  5. PROMASOL NOS [Concomitant]
     Indication: HORMONE REPLACEMENT THERAPY
     Dosage: UNK

REACTIONS (4)
  - Wrong technique in drug usage process [Unknown]
  - Madarosis [Unknown]
  - Madarosis [Unknown]
  - Incorrect dose administered [Unknown]
